FAERS Safety Report 5941572-5 (Version None)
Quarter: 2008Q4

REPORT INFORMATION
  Report Type: 
  Country: None (occurrence: None)
  Receive Date: 20081104
  Receipt Date: 20081104
  Transmission Date: 20090506
  Serious: Yes (Other)
  Sender: FDA-Public Use
  Company Number: None

PATIENT
  Age: 47 Year
  Sex: Female
  Weight: 49.8957 kg

DRUGS (1)
  1. BONIVA [Suspect]
     Indication: OSTEOPENIA
     Dosage: ONE A MONTH
     Dates: start: 20080920, end: 20081020

REACTIONS (3)
  - MUSCLE SPASMS [None]
  - MUSCLE TIGHTNESS [None]
  - URTICARIA [None]
